FAERS Safety Report 5781402-8 (Version None)
Quarter: 2008Q2

REPORT INFORMATION
  Report Type: 
  Country: None (occurrence: None)
  Receive Date: 20080623
  Receipt Date: 20080609
  Transmission Date: 20081010
  Serious: Yes (Hospitalization)
  Sender: FDA-Public Use
  Company Number: US-KINGPHARMUSA00001-K200800671

PATIENT

DRUGS (3)
  1. THROMBIN NOS [Suspect]
     Indication: VASCULAR PSEUDOANEURYSM
     Dosage: 500 U, SINGLE
     Route: 013
  2. ASPIRIN [Concomitant]
  3. CLOPIDOGREL [Concomitant]

REACTIONS (4)
  - ARTERIAL THROMBOSIS LIMB [None]
  - PAIN IN EXTREMITY [None]
  - POPLITEAL PULSE ABNORMAL [None]
  - SWELLING [None]
